FAERS Safety Report 21972742 (Version 4)
Quarter: 2023Q4

REPORT INFORMATION
  Report Type: Spontaneous
  Country: US (occurrence: US)
  Receive Date: 20230209
  Receipt Date: 20231219
  Transmission Date: 20240110
  Serious: No
  Sender: FDA-Public Use
  Company Number: US-PFIZER INC-PV202300024997

PATIENT
  Age: 78 Year
  Sex: Male
  Weight: 78.93 kg

DRUGS (1)
  1. VYNDAMAX [Suspect]
     Active Substance: TAFAMIDIS
     Indication: Cardiac amyloidosis
     Dosage: 61 MILLIGRAM PER CAPSULE ONCE

REACTIONS (1)
  - Hypoacusis [Not Recovered/Not Resolved]
